FAERS Safety Report 25838963 (Version 5)
Quarter: 2025Q4

REPORT INFORMATION
  Report Type: Spontaneous
  Country: US (occurrence: US)
  Receive Date: 20250924
  Receipt Date: 20251109
  Transmission Date: 20260117
  Serious: Yes (Life-Threatening, Hospitalization, Other)
  Sender: UNITED THERAPEUTICS
  Company Number: US-UNITED THERAPEUTICS-UNT-2025-032829

PATIENT
  Sex: Female
  Weight: 104.31 kg

DRUGS (80)
  1. TYVASO DPI [Suspect]
     Active Substance: TREPROSTINIL
     Indication: Pulmonary hypertension
     Dosage: 64 ?G, QID
     Dates: start: 20250819, end: 20251010
  2. TYVASO DPI [Suspect]
     Active Substance: TREPROSTINIL
     Indication: Idiopathic interstitial pneumonia
     Dosage: 48 ?G, QID
     Dates: start: 20251011
  3. TYVASO DPI [Suspect]
     Active Substance: TREPROSTINIL
     Dosage: UNK
  4. TYVASO DPI [Suspect]
     Active Substance: TREPROSTINIL
     Indication: Pulmonary hypertension
     Dosage: UNK
  5. TYVASO DPI [Suspect]
     Active Substance: TREPROSTINIL
     Indication: Idiopathic interstitial pneumonia
  6. CLOBETASOL PROPIONATE [Concomitant]
     Active Substance: CLOBETASOL PROPIONATE
     Indication: Product used for unknown indication
     Dosage: UNK
  7. MILK OF MAGNESIA [Concomitant]
     Active Substance: MAGNESIUM HYDROXIDE
     Indication: Product used for unknown indication
     Dosage: UNK
  8. LASIX [Concomitant]
     Active Substance: FUROSEMIDE
     Indication: Hypertension
     Dosage: 20 MG, QD
     Dates: start: 20230807
  9. LASIX [Concomitant]
     Active Substance: FUROSEMIDE
     Indication: Hypervolaemia
     Dosage: 10 MG/ HR
     Route: 041
     Dates: start: 20251011, end: 20251015
  10. LASIX [Concomitant]
     Active Substance: FUROSEMIDE
     Indication: Heart failure with preserved ejection fraction
     Dosage: 40 MG, BID
     Dates: start: 20251017
  11. LASIX [Concomitant]
     Active Substance: FUROSEMIDE
     Indication: Acute respiratory failure
     Dosage: 20 MG, QD
     Route: 041
  12. LASIX [Concomitant]
     Active Substance: FUROSEMIDE
     Indication: Pulmonary oedema
  13. KLONOPIN [Concomitant]
     Active Substance: CLONAZEPAM
     Indication: Anxiety
     Dosage: 0.25 MG, BID [AS NEEDED]
     Dates: start: 2008
  14. DIETHYLPROPION HYDROCHLORIDE [Concomitant]
     Active Substance: DIETHYLPROPION HYDROCHLORIDE
     Indication: Obesity
     Dosage: 75 MG, QD
     Dates: start: 20230811
  15. PAMELOR [Concomitant]
     Active Substance: NORTRIPTYLINE HYDROCHLORIDE
     Indication: Restless legs syndrome
     Dosage: 50 MG, QD
     Dates: start: 2013
  16. PAMELOR [Concomitant]
     Active Substance: NORTRIPTYLINE HYDROCHLORIDE
     Indication: Affective disorder
  17. FISH OIL [Concomitant]
     Active Substance: FISH OIL
     Indication: Product used for unknown indication
     Dosage: UNK
  18. MIRALAX [Concomitant]
     Active Substance: POLYETHYLENE GLYCOL 3350
     Indication: Product used for unknown indication
     Dosage: UNK
  19. ASTELIN [Concomitant]
     Active Substance: AZELASTINE HYDROCHLORIDE
     Indication: Seasonal allergy
     Dosage: 2 SPRAY, EACH NOSTRIL, BID
     Dates: start: 2011
  20. BREZTRI [Concomitant]
     Active Substance: BUDESONIDE\FORMOTEROL\GLYCOPYRROLATE
     Indication: Asthma
     Dosage: 2 PUFFS, BID
     Dates: start: 20240419
  21. VITAMIN D3 [Concomitant]
     Active Substance: CHOLECALCIFEROL
     Indication: Depression
     Dosage: 1 (CAPSULE OR TABLET), 1000 UNITS, QD
     Dates: start: 2013
  22. VENTOLIN HFA [Concomitant]
     Active Substance: ALBUTEROL SULFATE
     Indication: Asthma
     Dosage: 2 PUFF, EVERY 6 HOURS, PRN
  23. VENTOLIN HFA [Concomitant]
     Active Substance: ALBUTEROL SULFATE
     Dosage: 3 ML, PRN
  24. NEURONTIN [Concomitant]
     Active Substance: GABAPENTIN
     Indication: Neuropathy peripheral
     Dosage: 300 MG, BID
     Dates: start: 2017
  25. LINZESS [Concomitant]
     Active Substance: LINACLOTIDE
     Indication: Constipation
     Dosage: 145 ?G, QD
     Dates: start: 20230202
  26. FLONASE [Concomitant]
     Active Substance: FLUTICASONE PROPIONATE
     Indication: Seasonal allergy
     Dosage: 2 SPRAY, QD
  27. TYLENOL [Concomitant]
     Active Substance: ACETAMINOPHEN
     Indication: Product used for unknown indication
     Dosage: 650 MG, PRN
  28. VITAMIN C [Concomitant]
     Active Substance: ASCORBIC ACID
     Indication: Product used for unknown indication
     Dosage: UNK
  29. CELEXA [Concomitant]
     Active Substance: CITALOPRAM HYDROBROMIDE
     Indication: Depression
     Dosage: 20 MG, QD
     Dates: start: 2013
  30. CELEXA [Concomitant]
     Active Substance: CITALOPRAM HYDROBROMIDE
     Indication: Affective disorder
  31. OXYGEN [Concomitant]
     Active Substance: OXYGEN
     Indication: Pneumonia bacterial
     Dosage: 2 LITERS (PRN)
  32. OXYGEN [Concomitant]
     Active Substance: OXYGEN
     Indication: Pickwickian syndrome
     Dosage: 3 L
  33. OXYGEN [Concomitant]
     Active Substance: OXYGEN
     Indication: Chronic obstructive pulmonary disease
     Dosage: 2 L/MIN, CONTINOUS
  34. REQUIP [Concomitant]
     Active Substance: ROPINIROLE HYDROCHLORIDE
     Indication: Product used for unknown indication
     Dosage: 2 MG, BID
     Dates: start: 2017
  35. SINGULAIR [Concomitant]
     Active Substance: MONTELUKAST SODIUM
     Indication: Asthma
     Dosage: 10 MG, QD (NIGHTLY)
     Dates: start: 2008
  36. ZYRTEC [Concomitant]
     Active Substance: CETIRIZINE HYDROCHLORIDE
     Indication: Seasonal allergy
     Dosage: 10 MG, QD (NIGHT)
     Dates: start: 2013
  37. PRINIVIL [Concomitant]
     Active Substance: LISINOPRIL
     Indication: Hypertension
     Dosage: 40 MG, QD
     Dates: start: 2008, end: 20251013
  38. ZESTRIL [Concomitant]
     Active Substance: LISINOPRIL
     Indication: Hypertension
     Dosage: 40 MG, QD
     Dates: start: 2008, end: 20251013
  39. VITAMIN B COMPLEX [Concomitant]
     Active Substance: CYANOCOBALAMIN\DEXPANTHENOL\NIACINAMIDE\PYRIDOXINE HYDROCHLORIDE\RIBOFLAVIN 5^-PHOSPHATE SODIUM\THIA
     Indication: Product used for unknown indication
     Dosage: UNK
  40. PRILOSEC [Concomitant]
     Active Substance: OMEPRAZOLE MAGNESIUM
     Indication: Gastrooesophageal reflux disease
     Dosage: 20 MG, QD
     Dates: start: 2008
  41. APPLE CIDER VINEGAR [Concomitant]
     Active Substance: APPLE CIDER VINEGAR
     Indication: Product used for unknown indication
     Dosage: UNK
  42. ACETAMINOPHEN\HYDROCODONE [Concomitant]
     Active Substance: ACETAMINOPHEN\HYDROCODONE
     Indication: Pain
     Dosage: UNK
  43. REVATIO [Concomitant]
     Active Substance: SILDENAFIL CITRATE
     Indication: Pulmonary hypertension
     Dosage: 20 MG, TID
     Dates: start: 20240125
  44. REVATIO [Concomitant]
     Active Substance: SILDENAFIL CITRATE
     Indication: Interstitial lung disease
  45. VANCOMYCIN [Concomitant]
     Active Substance: VANCOMYCIN
     Indication: Lung infiltration
     Dosage: 1000 MG, QD
     Dates: start: 20251008, end: 20251013
  46. VANCOMYCIN [Concomitant]
     Active Substance: VANCOMYCIN
     Indication: Acute respiratory failure
     Dosage: UNK, DAILY
     Route: 041
  47. ZOSYN [Concomitant]
     Active Substance: PIPERACILLIN SODIUM\TAZOBACTAM SODIUM
     Indication: Lung infiltration
     Dosage: 3 GRAM, QID
     Dates: start: 20251008, end: 202510
  48. ZOSYN [Concomitant]
     Active Substance: PIPERACILLIN SODIUM\TAZOBACTAM SODIUM
     Indication: Acute respiratory failure
     Dosage: 3.375 GRAM, Q6H
     Route: 041
     Dates: start: 202510, end: 20251016
  49. ZOSYN [Concomitant]
     Active Substance: PIPERACILLIN SODIUM\TAZOBACTAM SODIUM
     Indication: Pneumonia
  50. METHYLPREDNISOLONE [Concomitant]
     Active Substance: METHYLPREDNISOLONE
     Indication: Respiratory failure
     Dosage: 4 MG
     Dates: start: 20250818, end: 20250828
  51. METHYLPREDNISOLONE [Concomitant]
     Active Substance: METHYLPREDNISOLONE
     Indication: Cervical radiculopathy
     Dosage: 40 MG, TID
     Dates: start: 20251009, end: 20251016
  52. METHYLPREDNISOLONE [Concomitant]
     Active Substance: METHYLPREDNISOLONE
     Indication: Acute respiratory failure
  53. VENOFER [Concomitant]
     Active Substance: IRON SUCROSE
     Indication: Anaemia
     Dosage: 500 MG, QD
     Route: 041
     Dates: start: 20251011, end: 20251011
  54. VENOFER [Concomitant]
     Active Substance: IRON SUCROSE
     Indication: Pernicious anaemia
  55. VENOFER [Concomitant]
     Active Substance: IRON SUCROSE
     Indication: Iron deficiency anaemia
  56. AUGMENTIN [Concomitant]
     Active Substance: AMOXICILLIN\CLAVULANATE POTASSIUM
     Indication: Pneumonia
     Dosage: 1 CAPSULE OR TABLET, BID
     Dates: start: 20250924, end: 20250927
  57. AUGMENTIN [Concomitant]
     Active Substance: AMOXICILLIN\CLAVULANATE POTASSIUM
     Indication: Bronchitis chronic
     Dosage: 1 TABLET, BID
     Dates: start: 20250928
  58. CEFTRIAXONE [Concomitant]
     Active Substance: CEFTRIAXONE
     Indication: Pneumonia
     Dosage: 2 GRAM, QD
     Dates: start: 20250928, end: 20250930
  59. AZITHROMYCIN [Concomitant]
     Active Substance: AZITHROMYCIN
     Indication: Chronic obstructive pulmonary disease
     Dosage: 500 MG, QD
     Dates: start: 20250522, end: 20250527
  60. AZITHROMYCIN [Concomitant]
     Active Substance: AZITHROMYCIN
     Indication: Bronchitis chronic
     Dosage: 500 MG, QD
     Dates: start: 20250829, end: 20250903
  61. AZITHROMYCIN [Concomitant]
     Active Substance: AZITHROMYCIN
     Indication: Pneumonia
     Dosage: 500 MG, QD
     Dates: start: 20250928, end: 20250930
  62. PREDNISONE [Concomitant]
     Active Substance: PREDNISONE
     Indication: Chronic obstructive pulmonary disease
     Dosage: 20 MG, QD
     Dates: start: 20250522, end: 20250527
  63. PREDNISONE [Concomitant]
     Active Substance: PREDNISONE
     Indication: Cervical radiculopathy
     Dosage: 10 MG, BID
     Dates: start: 20250823, end: 20250828
  64. PREDNISONE [Concomitant]
     Active Substance: PREDNISONE
     Indication: Pneumonia
     Dosage: 40 MG, QD
     Dates: start: 20251001, end: 20251003
  65. PREDNISONE [Concomitant]
     Active Substance: PREDNISONE
     Dosage: 40 MG, QD
     Dates: start: 20251019
  66. CHLORZOXAZONE [Concomitant]
     Active Substance: CHLORZOXAZONE
     Indication: Cervical radiculopathy
     Dosage: 250 MG, TID
     Dates: start: 20250818, end: 20250828
  67. DEXAMETHASONE [Concomitant]
     Active Substance: DEXAMETHASONE
     Indication: Cervical radiculopathy
     Dosage: 10 MG, QD
     Dates: start: 20250822, end: 20250822
  68. FERROUS SULFATE [Concomitant]
     Active Substance: FERROUS SULFATE
     Indication: Pernicious anaemia
     Dosage: 325 MG, QD
     Dates: start: 20250928, end: 20251001
  69. SPIRONOLACTONE [Concomitant]
     Active Substance: SPIRONOLACTONE
     Indication: Heart failure with preserved ejection fraction
     Dosage: 25 MG, QD
     Dates: start: 20251024
  70. EMPAGLIFLOZIN [Concomitant]
     Active Substance: EMPAGLIFLOZIN
     Indication: Heart failure with preserved ejection fraction
     Dosage: 10 MG, QD
     Dates: start: 20251024
  71. POTASSIUM CHLORIDE [Concomitant]
     Active Substance: POTASSIUM CHLORIDE
     Indication: Heart failure with preserved ejection fraction
     Dosage: 20 MEQ, ONE TIME PER DAY
     Dates: start: 20251011, end: 20251018
  72. METOLAZONE [Concomitant]
     Active Substance: METOLAZONE
     Indication: Heart failure with preserved ejection fraction
     Dosage: 3 MG, QD
     Dates: start: 20251017, end: 20251017
  73. BROVANA [Concomitant]
     Active Substance: ARFORMOTEROL TARTRATE
     Indication: Product used for unknown indication
     Dosage: 15 ?G, BID
     Dates: start: 20251018
  74. PULMICORT TURBUHALER [Concomitant]
     Active Substance: BUDESONIDE
     Indication: Product used for unknown indication
     Dosage: 1 MG, QD
     Dates: start: 20251019
  75. GUAIFENESIN AND DEXTROMETHORPHAN [Concomitant]
     Active Substance: DEXTROMETHORPHAN\GUAIFENESIN
     Indication: Product used for unknown indication
     Dosage: 1 TABLET, Q12H
     Dates: start: 20251018
  76. DUONEB [Concomitant]
     Active Substance: ALBUTEROL SULFATE\IPRATROPIUM BROMIDE
     Indication: Product used for unknown indication
     Dosage: 3 ML, Q6H
  77. PERFLUOROHEXYLOCTANE [Concomitant]
     Active Substance: PERFLUOROHEXYLOCTANE
     Indication: Product used for unknown indication
     Dosage: 1 DROP, QID
     Route: 047
  78. ALBUTEROL [Concomitant]
     Active Substance: ALBUTEROL
     Indication: Product used for unknown indication
     Dosage: 2.5 MG, QID [AS NEEDED]
  79. ANORO ELLIPTA [Concomitant]
     Active Substance: UMECLIDINIUM BROMIDE\VILANTEROL TRIFENATATE
     Indication: Chronic obstructive pulmonary disease
     Dosage: UNK
  80. ANORO ELLIPTA [Concomitant]
     Active Substance: UMECLIDINIUM BROMIDE\VILANTEROL TRIFENATATE
     Indication: Asthma

REACTIONS (18)
  - Acute respiratory failure [Recovered/Resolved]
  - Pneumonia [Recovered/Resolved]
  - Peripheral swelling [Not Recovered/Not Resolved]
  - Pneumonia bacterial [Recovering/Resolving]
  - Pulmonary oedema [Recovering/Resolving]
  - Cardiac failure acute [Recovering/Resolving]
  - Chronic obstructive pulmonary disease [Recovering/Resolving]
  - Anaemia [Recovering/Resolving]
  - Generalised oedema [Recovering/Resolving]
  - Asthma [Recovering/Resolving]
  - Infection [Unknown]
  - Pain [Unknown]
  - Hypersensitivity [Unknown]
  - Respiratory acidosis [Unknown]
  - Productive cough [Unknown]
  - Bronchitis chronic [Recovered/Resolved]
  - Pernicious anaemia [Recovered/Resolved]
  - Dizziness [Unknown]

NARRATIVE: CASE EVENT DATE: 20250101
